FAERS Safety Report 8006717-4 (Version None)
Quarter: 2011Q4

REPORT INFORMATION
  Report Type: 
  Country: None (occurrence: None)
  Receive Date: 20111227
  Receipt Date: 20111215
  Transmission Date: 20120403
  Serious: Yes (Hospitalization)
  Sender: FDA-Public Use
  Company Number: CA-JNJFOC-20111208605

PATIENT
  Sex: Female

DRUGS (4)
  1. ACETAMINOPHEN [Concomitant]
     Indication: PREMEDICATION
     Route: 048
  2. REMICADE [Suspect]
     Indication: PRODUCT USED FOR UNKNOWN INDICATION
     Dosage: 13 INFUSIONS
     Route: 042
  3. REMICADE [Suspect]
     Route: 042
     Dates: start: 20111215
  4. HYDROCORTISONE [Concomitant]
     Indication: PREMEDICATION
     Dosage: 15 MINUTES PRIOR
     Route: 042

REACTIONS (1)
  - PANCREATITIS [None]
